FAERS Safety Report 7851239 (Version 13)
Quarter: 2012Q4

REPORT INFORMATION
  Report Type: 
  Country: DE (occurrence: DE)
  Receive Date: 20110310
  Receipt Date: 20121207
  Transmission Date: 20130627
  Serious: Yes (Hospitalization)
  Sender: FDA-Public Use
  Company Number: PHHO2011DE03843

PATIENT
  Age: 45 Year
  Sex: Male
  Weight: 113 kg

DRUGS (6)
  1. AMN107 [Suspect]
     Indication: CHRONIC MYELOID LEUKAEMIA
     Dosage: 200 mg, BID
     Route: 048
     Dates: start: 20080805
  2. RAMILICH [Concomitant]
  3. ALLOPURINOL [Concomitant]
     Indication: HYPERURICAEMIA
     Dosage: 300 mg, QD
     Route: 048
     Dates: start: 2000
  4. BISOPROLOL [Concomitant]
     Indication: HYPERTENSION
     Dosage: 0.5 mg, QD
     Dates: start: 20111023
  5. PANTOZOL [Concomitant]
     Indication: PROPHYLAXIS AGAINST GASTROINTESTINAL ULCER
     Dates: start: 20110224
  6. VERGENTAN [Concomitant]
     Indication: NAUSEA
     Dosage: UNK
     Dates: start: 20100901

REACTIONS (3)
  - Coronary artery disease [Not Recovered/Not Resolved]
  - Coronary artery stenosis [Recovered/Resolved]
  - Acute myocardial infarction [Recovered/Resolved with Sequelae]
